FAERS Safety Report 25522601 (Version 1)
Quarter: 2025Q3

REPORT INFORMATION
  Report Type: Report from Study
  Country: US (occurrence: US)
  Receive Date: 20250707
  Receipt Date: 20250707
  Transmission Date: 20251020
  Serious: Yes (Other)
  Sender: JOHNSON AND JOHNSON
  Company Number: US-JNJFOC-20250701414

PATIENT
  Age: 60 Year
  Sex: Female

DRUGS (2)
  1. SPRAVATO [Suspect]
     Active Substance: ESKETAMINE
     Indication: Depression
     Dosage: ^56 MG, 1 TOTAL DOSE^, PATIENT HAD 84 MG  ON 02-JUL-2025
     Route: 045
     Dates: start: 20250626, end: 20250626
  2. SPRAVATO [Suspect]
     Active Substance: ESKETAMINE
     Dosage: ^UNSPECIFIED DOSE, 1 TOTAL DOSE^
     Route: 045
     Dates: start: 20250625, end: 20250625

REACTIONS (5)
  - Hallucination, visual [Recovered/Resolved]
  - Gait disturbance [Recovered/Resolved]
  - Illness [Recovered/Resolved]
  - Asthenia [Recovered/Resolved]
  - Electrolyte imbalance [Recovered/Resolved]

NARRATIVE: CASE EVENT DATE: 20250601
